FAERS Safety Report 19094531 (Version 2)
Quarter: 2021Q2

REPORT INFORMATION
  Report Type: Spontaneous
  Country: JP (occurrence: JP)
  Receive Date: 20210406
  Receipt Date: 20210502
  Transmission Date: 20210717
  Serious: Yes (Other)
  Sender: FDA-Public Use
  Company Number: JP-JNJFOC-20210133639

PATIENT
  Age: 42 Year
  Sex: Female

DRUGS (5)
  1. INVEGA [Suspect]
     Active Substance: PALIPERIDONE
     Indication: PRODUCT USED FOR UNKNOWN INDICATION
     Route: 048
     Dates: start: 20210118, end: 2021
  2. LEXAPRO [Concomitant]
     Active Substance: ESCITALOPRAM OXALATE
     Dosage: DOSE UNKNOWN
     Route: 048
     Dates: start: 20210406
  3. INVEGA [Suspect]
     Active Substance: PALIPERIDONE
     Indication: PRODUCT USED FOR UNKNOWN INDICATION
     Route: 048
     Dates: start: 202103, end: 202103
  4. INVEGA [Suspect]
     Active Substance: PALIPERIDONE
     Indication: PRODUCT USED FOR UNKNOWN INDICATION
     Route: 048
     Dates: start: 20210330, end: 2021
  5. LANDSEN [Concomitant]
     Active Substance: CLONAZEPAM
     Dosage: DOSE UNKNOWN
     Route: 048
     Dates: start: 202104

REACTIONS (15)
  - Depressed mood [Unknown]
  - Amenorrhoea [Unknown]
  - Head discomfort [Unknown]
  - Treatment noncompliance [Unknown]
  - Feeling abnormal [Unknown]
  - Mental impairment [Unknown]
  - Malaise [Unknown]
  - Weight increased [Unknown]
  - Galactorrhoea [Unknown]
  - Face oedema [Unknown]
  - Listless [Unknown]
  - Product use in unapproved indication [Unknown]
  - Inappropriate schedule of product administration [Unknown]
  - Off label use [Unknown]
  - Speech disorder [Unknown]

NARRATIVE: CASE EVENT DATE: 2021
